FAERS Safety Report 7945292-7 (Version None)
Quarter: 2011Q4

REPORT INFORMATION
  Report Type: 
  Country: None (occurrence: None)
  Receive Date: 20111129
  Receipt Date: 20101216
  Transmission Date: 20120403
  Serious: No
  Sender: FDA-Public Use
  Company Number: US-GLAXOSMITHKLINE-A0900984A

PATIENT
  Age: 51 Year
  Sex: Female

DRUGS (2)
  1. WELLBUTRIN SR [Suspect]
     Indication: PRODUCT USED FOR UNKNOWN INDICATION
     Dosage: 150MG UNKNOWN
     Route: 048
     Dates: start: 20071004
  2. LAMICTAL [Suspect]
     Dosage: 200MG UNKNOWN
     Route: 048
     Dates: start: 20071004

REACTIONS (2)
  - CHEST PAIN [None]
  - DRUG ADMINISTRATION ERROR [None]
